FAERS Safety Report 21095203 (Version 1)
Quarter: 2022Q3

REPORT INFORMATION
  Report Type: Spontaneous
  Country: US (occurrence: None)
  Receive Date: 20220717
  Receipt Date: 20220717
  Transmission Date: 20221026
  Serious: Yes (Disabling)
  Sender: FDA-Public Use
  Company Number: None

PATIENT
  Sex: Female

DRUGS (1)
  1. CIPROFLOXACIN [Suspect]
     Active Substance: CIPROFLOXACIN
     Indication: Bacterial infection
     Route: 048
     Dates: start: 20060101, end: 20071231

REACTIONS (3)
  - Autonomic neuropathy [None]
  - Disability [None]
  - Economic problem [None]

NARRATIVE: CASE EVENT DATE: 20060615
